FAERS Safety Report 12736228 (Version 2)
Quarter: 2016Q4

REPORT INFORMATION
  Report Type: Spontaneous
  Country: US (occurrence: US)
  Receive Date: 20160912
  Receipt Date: 20161017
  Transmission Date: 20170207
  Serious: Yes (Other)
  Sender: FDA-Public Use
  Company Number: ALCN2016US006243

PATIENT
  Age: 72 Year
  Sex: Female

DRUGS (5)
  1. ILEVRO [Suspect]
     Active Substance: NEPAFENAC
     Dosage: 1 GTT, QD
     Route: 047
     Dates: end: 20160905
  2. PREDNISOL//PREDNISOLONE [Concomitant]
     Indication: POSTOPERATIVE CARE
     Dosage: 1 GTT, QID
     Route: 047
     Dates: start: 20160822
  3. POLYTRIM [Concomitant]
     Active Substance: POLYMYXIN B SULFATE\TRIMETHOPRIM SULFATE
     Indication: POSTOPERATIVE CARE
     Dosage: 1 GTT, QHS
     Route: 065
     Dates: start: 20160820, end: 20160828
  4. OCUFLOX//OFLOXACIN [Concomitant]
     Indication: PRODUCT USED FOR UNKNOWN INDICATION
     Route: 065
  5. ILEVRO [Suspect]
     Active Substance: NEPAFENAC
     Indication: POSTOPERATIVE CARE
     Dosage: 1 GTT, QD
     Route: 047
     Dates: start: 20160822, end: 20160823

REACTIONS (1)
  - Blindness transient [Recovered/Resolved]

NARRATIVE: CASE EVENT DATE: 20160822
